FAERS Safety Report 5706690-5 (Version None)
Quarter: 2008Q2

REPORT INFORMATION
  Report Type: 
  Country: None (occurrence: None)
  Receive Date: 20080414
  Receipt Date: 20080414
  Transmission Date: 20081010
  Serious: Yes (Hospitalization)
  Sender: FDA-Public Use
  Company Number: None

PATIENT
  Sex: Female
  Weight: 60 kg

DRUGS (2)
  1. FLUOROURACIL [Suspect]
     Dosage: 13120 MG
  2. MITOMYCIN [Suspect]
     Dosage: 32.8 MG

REACTIONS (4)
  - CLOSTRIDIAL INFECTION [None]
  - PNEUMONIA [None]
  - PULMONARY OEDEMA [None]
  - RADIATION SKIN INJURY [None]
